FAERS Safety Report 5492756-4 (Version None)
Quarter: 2007Q4

REPORT INFORMATION
  Report Type: 
  Country: None (occurrence: None)
  Receive Date: 20071023
  Receipt Date: 20071016
  Transmission Date: 20080405
  Serious: Yes (Other)
  Sender: FDA-Public Use
  Company Number: PHRM2007FR02406

PATIENT
  Age: 58 Year
  Sex: Female

DRUGS (4)
  1. EXFORGE [Suspect]
     Indication: HYPERTENSION
     Dosage: 5MGAMLO/160MG VALS, UNK
     Route: 048
     Dates: start: 20070914, end: 20071016
  2. NEO-MERCAZOLE TAB [Concomitant]
     Indication: HYPERTHYROIDISM
  3. PROPRANOLOL HYDROCHLORIDE [Concomitant]
  4. LEVOTHYROX [Concomitant]

REACTIONS (3)
  - BREAST DISCOMFORT [None]
  - BREAST PAIN [None]
  - METRORRHAGIA [None]
